FAERS Safety Report 5638137-1 (Version None)
Quarter: 2008Q1

REPORT INFORMATION
  Report Type: 
  Country: None (occurrence: None)
  Receive Date: 20080221
  Receipt Date: 20080205
  Transmission Date: 20080703
  Serious: Yes (Hospitalization, Other)
  Sender: FDA-Public Use
  Company Number: DSA_31411_2008

PATIENT
  Age: 35 Year
  Sex: Female

DRUGS (4)
  1. LORAZEPAM [Suspect]
     Indication: AGITATION
     Dosage: (2 MG 2 (2 MG AT 2200 AND AGAIN AT 2340) ORAL)
     Route: 048
     Dates: start: 20071023
  2. ZYPREXA [Suspect]
     Indication: AGITATION
     Dosage: (10 MG ZYDIS ORAL)
     Route: 048
     Dates: start: 20071023
  3. ZYPREXA [Suspect]
     Dosage: (10 MG RAPID ACTING IM INTRAMUSCULAR)
     Route: 030
     Dates: start: 20071024
  4. LITHIUM CARBONATE [Concomitant]

REACTIONS (4)
  - DYSPNOEA [None]
  - HYPOTENSION [None]
  - SCREAMING [None]
  - TACHYPNOEA [None]
